FAERS Safety Report 11909536 (Version 3)
Quarter: 2016Q4

REPORT INFORMATION
  Report Type: Report from Study
  Country: GB (occurrence: GB)
  Receive Date: 20160112
  Receipt Date: 20161202
  Transmission Date: 20170206
  Serious: Yes (Death, Other)
  Sender: FDA-Public Use
  Company Number: GB-UCBSA-2016000756

PATIENT
  Age: 71 Year
  Sex: Female

DRUGS (2)
  1. CERTOLIZUMAB PEGOL RA [Suspect]
     Active Substance: CERTOLIZUMAB PEGOL
     Indication: RHEUMATOID ARTHRITIS
     Dosage: 200 MG, UNK
     Route: 058
     Dates: end: 20140715
  2. METHOTREXATE. [Concomitant]
     Active Substance: METHOTREXATE
     Indication: RHEUMATOID ARTHRITIS

REACTIONS (4)
  - Multiple organ dysfunction syndrome [Fatal]
  - Rheumatoid arthritis [Fatal]
  - Ischaemic stroke [Fatal]
  - Dementia [Fatal]

NARRATIVE: CASE EVENT DATE: 20120915
